FAERS Safety Report 22643909 (Version 1)
Quarter: 2023Q2

REPORT INFORMATION
  Report Type: Spontaneous
  Country: US (occurrence: US)
  Receive Date: 20230627
  Receipt Date: 20230627
  Transmission Date: 20230722
  Serious: No
  Sender: FDA-Public Use
  Company Number: US-HORIZON THERAPEUTICS-HZN-2023-001970

PATIENT

DRUGS (3)
  1. PREDNISONE [Interacting]
     Active Substance: PREDNISONE
     Indication: Product used for unknown indication
     Dosage: UNK
     Route: 065
     Dates: end: 20230310
  2. TYVASO [Interacting]
     Active Substance: TREPROSTINIL
     Indication: Pulmonary arterial hypertension
     Dosage: 16 UG, QID
     Dates: start: 20230227
  3. TYVASO [Interacting]
     Active Substance: TREPROSTINIL
     Dosage: UNK

REACTIONS (2)
  - Drug interaction [Unknown]
  - Panic attack [Unknown]

NARRATIVE: CASE EVENT DATE: 20230101
